FAERS Safety Report 22049699 (Version 1)
Quarter: 2023Q1

REPORT INFORMATION
  Report Type: Spontaneous
  Country: NO (occurrence: NO)
  Receive Date: 20230301
  Receipt Date: 20230301
  Transmission Date: 20230417
  Serious: Yes (Hospitalization)
  Sender: FDA-Public Use
  Company Number: None

PATIENT
  Sex: Female

DRUGS (2)
  1. VENLAFAXINE HYDROCHLORIDE [Suspect]
     Active Substance: VENLAFAXINE HYDROCHLORIDE
     Indication: Depression
     Dosage: 300 MILLIGRAM, QD (RETARDED CAPSULE, HARD)
     Route: 065
     Dates: start: 20220602
  2. LAMICTAL [Suspect]
     Active Substance: LAMOTRIGINE
     Indication: Depression
     Dosage: 400 MILLIGRAM, QD
     Route: 065
     Dates: start: 20220602

REACTIONS (12)
  - Drug withdrawal syndrome neonatal [Recovering/Resolving]
  - Foetal exposure during pregnancy [Recovering/Resolving]
  - Muscle twitching [Unknown]
  - Body temperature increased [Unknown]
  - Nasal congestion [Unknown]
  - Food refusal [Unknown]
  - Restlessness [Unknown]
  - Fatigue [Unknown]
  - Diarrhoea [Unknown]
  - Irritability [Unknown]
  - Tremor [Unknown]
  - Insomnia [Unknown]

NARRATIVE: CASE EVENT DATE: 20230118
